FAERS Safety Report 14945770 (Version 2)
Quarter: 2018Q3

REPORT INFORMATION
  Report Type: Spontaneous
  Country: DE (occurrence: DE)
  Receive Date: 20180529
  Receipt Date: 20180709
  Transmission Date: 20181010
  Serious: Yes (Hospitalization, Other)
  Sender: FDA-Public Use
  Company Number: PHHY2018DE007116

PATIENT

DRUGS (3)
  1. METOPROLOL TARTRATE. [Suspect]
     Active Substance: METOPROLOL TARTRATE
     Indication: PRODUCT USED FOR UNKNOWN INDICATION
     Route: 065
  2. FLUPIRTINE [Suspect]
     Active Substance: FLUPIRTINE
     Indication: MUSCULOSKELETAL DISORDER
  3. FLUPIRTINE [Suspect]
     Active Substance: FLUPIRTINE
     Indication: BACK PAIN
     Dosage: 400 DF, UNK
     Route: 065

REACTIONS (1)
  - Drug-induced liver injury [Recovering/Resolving]
